FAERS Safety Report 11514132 (Version 1)
Quarter: 2015Q3

REPORT INFORMATION
  Report Type: Spontaneous
  Country: US (occurrence: US)
  Receive Date: 20150903
  Receipt Date: 20150903
  Transmission Date: 20151125
  Serious: No
  Sender: FDA-Public Use
  Company Number: US-ELI_LILLY_AND_COMPANY-US201212003527

PATIENT
  Age: 36 Year
  Sex: Female

DRUGS (13)
  1. CYMBALTA [Suspect]
     Active Substance: DULOXETINE HYDROCHLORIDE
     Dosage: 120 MG, QD (TWO 60 MG)
     Dates: start: 201210
  2. CYMBALTA [Suspect]
     Active Substance: DULOXETINE HYDROCHLORIDE
     Dosage: 90 MG, QD (ONE 30 MG AND ONE 60 MG)
  3. CYMBALTA [Suspect]
     Active Substance: DULOXETINE HYDROCHLORIDE
     Dosage: 60 MG, QD
  4. GLUCOSAMINE [Concomitant]
     Active Substance: GLUCOSAMINE
  5. CYMBALTA [Suspect]
     Active Substance: DULOXETINE HYDROCHLORIDE
     Indication: POSTPARTUM DEPRESSION
     Dosage: 30 MG, QD
     Dates: start: 201209
  6. CYMBALTA [Suspect]
     Active Substance: DULOXETINE HYDROCHLORIDE
     Dosage: 90 MG, QD (ONE 30 MG AND ONE 60MG)
     Dates: start: 201209
  7. XANAX [Concomitant]
     Active Substance: ALPRAZOLAM
  8. MULTIVITAMINS [Concomitant]
     Active Substance: VITAMINS
  9. PRENATAL VITAMINS                  /01549301/ [Concomitant]
     Active Substance: VITAMINS
  10. CYMBALTA [Suspect]
     Active Substance: DULOXETINE HYDROCHLORIDE
     Dosage: 60 MG, QD
     Dates: start: 201209
  11. CYMBALTA [Suspect]
     Active Substance: DULOXETINE HYDROCHLORIDE
     Dosage: 30 MG, QD
  12. CYMBALTA [Suspect]
     Active Substance: DULOXETINE HYDROCHLORIDE
     Dosage: 30 MG, EVERY OTHER DAY
     Dates: start: 20121208
  13. EXCEDRIN MIGRAINE [Concomitant]
     Active Substance: ACETAMINOPHEN\ASPIRIN\CAFFEINE

REACTIONS (17)
  - Panic attack [Unknown]
  - Fatigue [Unknown]
  - Hot flush [Unknown]
  - Drug ineffective [Unknown]
  - Pain [Unknown]
  - Feeling abnormal [Unknown]
  - Dizziness [Unknown]
  - Anxiety [Unknown]
  - Agitation [Unknown]
  - Dyskinesia [Unknown]
  - Palpitations [Unknown]
  - Aggression [Unknown]
  - Paraesthesia [Unknown]
  - Hyperhidrosis [Unknown]
  - Drug withdrawal syndrome [Unknown]
  - Amnesia [Unknown]
  - Headache [Unknown]

NARRATIVE: CASE EVENT DATE: 20121211
